FAERS Safety Report 9239314 (Version 1)
Quarter: 2013Q2

REPORT INFORMATION
  Report Type: Spontaneous
  Country: JP (occurrence: JP)
  Receive Date: 20130418
  Receipt Date: 20130418
  Transmission Date: 20140414
  Serious: Yes (Life-Threatening, Hospitalization)
  Sender: FDA-Public Use
  Company Number: JP-MYLANLABS-2013S1007744

PATIENT
  Age: 74 Year
  Sex: Female
  Weight: 48.7 kg

DRUGS (8)
  1. VANCOMYCIN [Suspect]
     Indication: PNEUMONIA
     Route: 041
     Dates: start: 20130212, end: 20130221
  2. MEROPENEM [Suspect]
     Indication: PNEUMONIA
     Route: 041
     Dates: start: 20130209, end: 20130213
  3. OMEPRAL /00661201/ [Suspect]
     Indication: ULCER HAEMORRHAGE
     Route: 041
     Dates: start: 20130207, end: 20130212
  4. TIENAM [Suspect]
     Indication: PNEUMONIA
     Route: 041
  5. MINOPEN [Suspect]
     Indication: PNEUMONIA
     Route: 041
     Dates: start: 20130209, end: 20130213
  6. GASTER [Concomitant]
     Indication: ULCER HAEMORRHAGE
     Dosage: IV
     Dates: start: 20130213, end: 20130214
  7. GAMOFA [Concomitant]
     Indication: ULCER HAEMORRHAGE
     Dosage: PO
     Dates: start: 20130215
  8. FUROSEMIDE [Concomitant]
     Indication: CARDIAC FAILURE CONGESTIVE
     Dosage: IV
     Dates: start: 20130208, end: 20130220

REACTIONS (3)
  - Hepatic function abnormal [Recovering/Resolving]
  - Haemoglobin decreased [None]
  - Lymphocyte stimulation test positive [None]
